FAERS Safety Report 23965851 (Version 1)
Quarter: 2024Q2

REPORT INFORMATION
  Report Type: Spontaneous
  Country: NO (occurrence: NO)
  Receive Date: 20240612
  Receipt Date: 20240612
  Transmission Date: 20240715
  Serious: Yes (Hospitalization)
  Sender: FDA-Public Use
  Company Number: NO-ASTELLAS-2024US016530

PATIENT
  Sex: Male

DRUGS (2)
  1. XTANDI [Suspect]
     Active Substance: ENZALUTAMIDE
     Indication: Prostate cancer
     Dosage: 320 MG, UNKNOWN FREQ. (DOUBLE DOSE I.E 160 MG X 2)
     Route: 065
  2. XTANDI [Suspect]
     Active Substance: ENZALUTAMIDE
     Route: 065

REACTIONS (2)
  - Cardiac disorder [Recovered/Resolved]
  - Accidental overdose [Unknown]
